FAERS Safety Report 16059533 (Version 9)
Quarter: 2020Q2

REPORT INFORMATION
  Report Type: Report from Study
  Country: None (occurrence: FR)
  Receive Date: 20190311
  Receipt Date: 20200529
  Transmission Date: 20200713
  Serious: Yes (Death, Other)
  Sender: FDA-Public Use
  Company Number: FR-ABBVIE-19K-056-2692642-00

PATIENT
  Age: 74 Year
  Sex: Female
  Weight: 59 kg

DRUGS (14)
  1. VENCLYXTO [Suspect]
     Active Substance: VENETOCLAX
     Route: 048
     Dates: start: 20181030, end: 20181105
  2. VENCLYXTO [Suspect]
     Active Substance: VENETOCLAX
     Route: 048
     Dates: start: 20191106, end: 20191125
  3. VENCLYXTO [Suspect]
     Active Substance: VENETOCLAX
     Indication: CHRONIC LYMPHOCYTIC LEUKAEMIA
     Route: 048
     Dates: start: 20181010, end: 20181011
  4. HUMAN IMMUNOGLOBULIN [Concomitant]
     Indication: HYPOGAMMAGLOBULINAEMIA
     Dates: start: 2015
  5. RITUXIMAB. [Concomitant]
     Active Substance: RITUXIMAB
     Indication: CHRONIC LYMPHOCYTIC LEUKAEMIA
     Dates: start: 20181221, end: 20190513
  6. VENCLYXTO [Suspect]
     Active Substance: VENETOCLAX
     Route: 048
     Dates: start: 20181023, end: 20181029
  7. ALLOPURINOL. [Concomitant]
     Active Substance: ALLOPURINOL
     Indication: PROPHYLAXIS
     Dates: start: 20181006, end: 20181214
  8. VENCLYXTO [Suspect]
     Active Substance: VENETOCLAX
     Route: 048
     Dates: start: 20181016, end: 20181022
  9. VENCLYXTO [Suspect]
     Active Substance: VENETOCLAX
     Route: 048
     Dates: start: 20181106, end: 20181113
  10. VENCLYXTO [Suspect]
     Active Substance: VENETOCLAX
     Route: 048
     Dates: start: 20181114, end: 20191105
  11. ZELITREX [Concomitant]
     Active Substance: VALACYCLOVIR HYDROCHLORIDE
     Indication: ANTIVIRAL PROPHYLAXIS
     Dates: start: 20090715
  12. IMBRUVICA [Suspect]
     Active Substance: IBRUTINIB
     Indication: CHRONIC LYMPHOCYTIC LEUKAEMIA
     Route: 065
     Dates: start: 20160204, end: 20181114
  13. SPECIAFOLDINE [Concomitant]
     Active Substance: FOLIC ACID
     Indication: VITAMIN SUPPLEMENTATION
     Dates: start: 20090715
  14. HUMAN IMMUNOGLOBULIN [Concomitant]
     Indication: HYPOGAMMAGLOBULINAEMIA
     Dates: start: 2015

REACTIONS (42)
  - Acute myeloid leukaemia [Fatal]
  - Odynophagia [Unknown]
  - Decreased appetite [Not Recovered/Not Resolved]
  - General physical health deterioration [Recovered/Resolved]
  - Haematuria [Not Recovered/Not Resolved]
  - Tremor [Recovered/Resolved]
  - Pancytopenia [Not Recovered/Not Resolved]
  - Hyperthermia [Recovered/Resolved]
  - Confusional state [Recovered/Resolved]
  - Productive cough [Unknown]
  - Haematoma [Unknown]
  - Back pain [Not Recovered/Not Resolved]
  - Haemoptysis [Unknown]
  - Nausea [Recovered/Resolved]
  - Hyperthermia [Recovered/Resolved]
  - Neutropenia [Recovered/Resolved with Sequelae]
  - Asthenia [Not Recovered/Not Resolved]
  - Haematoma [Unknown]
  - Hyperuricaemia [Recovered/Resolved with Sequelae]
  - Diarrhoea [Not Recovered/Not Resolved]
  - Hyperuricaemia [Recovered/Resolved]
  - Pyrexia [Recovered/Resolved]
  - Cholestasis [Recovered/Resolved]
  - Off label use [Unknown]
  - Somnolence [Recovered/Resolved]
  - Hepatic lesion [Not Recovered/Not Resolved]
  - Cholestasis [Recovered/Resolved]
  - Hyperkalaemia [Recovered/Resolved]
  - Oedema peripheral [Unknown]
  - Hepatic function abnormal [Unknown]
  - Rash pruritic [Recovered/Resolved]
  - Angina bullosa haemorrhagica [Not Recovered/Not Resolved]
  - Headache [Not Recovered/Not Resolved]
  - Nausea [Recovered/Resolved]
  - Phlebitis [Not Recovered/Not Resolved]
  - Fall [Recovered/Resolved]
  - Neutropenia [Recovered/Resolved]
  - Hepatic pain [Not Recovered/Not Resolved]
  - Cough [Recovered/Resolved]
  - Osteoarthritis [Not Recovered/Not Resolved]
  - Cognitive disorder [Recovered/Resolved]
  - Skin oedema [Not Recovered/Not Resolved]

NARRATIVE: CASE EVENT DATE: 20181010
